FAERS Safety Report 19725237 (Version 2)
Quarter: 2021Q3

REPORT INFORMATION
  Report Type: Spontaneous
  Country: IT (occurrence: IT)
  Receive Date: 20210819
  Receipt Date: 20210825
  Transmission Date: 20211014
  Serious: Yes (Other)
  Sender: FDA-Public Use
  Company Number: IT-REGENERON PHARMACEUTICALS, INC.-2021-77319

PATIENT

DRUGS (1)
  1. LIBTAYO [Suspect]
     Active Substance: CEMIPLIMAB-RWLC
     Indication: SKIN SQUAMOUS CELL CARCINOMA METASTATIC
     Dosage: 350 MG, QCY(CYCLICAL)
     Route: 042
     Dates: start: 20210101, end: 20210101

REACTIONS (1)
  - Oedema peripheral [Not Recovered/Not Resolved]

NARRATIVE: CASE EVENT DATE: 20210804
